FAERS Safety Report 7744212-8 (Version None)
Quarter: 2011Q3

REPORT INFORMATION
  Report Type: 
  Country: None (occurrence: None)
  Receive Date: 20110912
  Receipt Date: 20110901
  Transmission Date: 20111222
  Serious: Yes (Hospitalization)
  Sender: FDA-Public Use
  Company Number: US-ASTRAZENECA-2011SE49807

PATIENT
  Age: 82 Year
  Sex: Female

DRUGS (4)
  1. ATACAND [Suspect]
     Route: 048
  2. ATACAND HCT [Suspect]
     Route: 048
  3. CRESTOR [Suspect]
     Route: 048
  4. TOPROL-XL [Concomitant]

REACTIONS (5)
  - BLOOD PRESSURE INCREASED [None]
  - MALAISE [None]
  - HYPERTENSION [None]
  - GLAUCOMA [None]
  - DRUG DOSE OMISSION [None]
